FAERS Safety Report 5789130-X (Version None)
Quarter: 2008Q2

REPORT INFORMATION
  Report Type: 
  Country: None (occurrence: None)
  Receive Date: 20080626
  Receipt Date: 20080617
  Transmission Date: 20081010
  Serious: Yes (Hospitalization)
  Sender: FDA-Public Use
  Company Number: US-JNJFOC-20080604889

PATIENT
  Sex: Female

DRUGS (18)
  1. DURAGESIC-100 [Suspect]
     Indication: PAIN
     Route: 062
  2. ABILIFY [Concomitant]
     Indication: DRUG THERAPY
     Route: 048
  3. ACTOS [Concomitant]
     Indication: DIABETES MELLITUS
     Route: 048
  4. BUSPIRONE HCL [Concomitant]
     Indication: ANXIETY
     Route: 048
  5. SOMA [Concomitant]
     Indication: MUSCLE SPASMS
     Dosage: 1-3 TIMES PER DAY
     Route: 048
  6. CRANBERRY CAPSULES [Concomitant]
     Indication: CYSTITIS
     Route: 048
  7. CYMBALTA [Concomitant]
     Indication: BIPOLAR DISORDER
     Route: 048
  8. DETROL [Concomitant]
     Indication: HYPOTONIC URINARY BLADDER
     Route: 048
  9. BENADRYL [Concomitant]
     Indication: INSOMNIA
     Route: 048
  10. ESTER C [Concomitant]
     Indication: MENOPAUSE
     Route: 048
  11. FOLIC ACID [Concomitant]
     Indication: ANAEMIA
     Route: 048
  12. LYRICA [Concomitant]
     Indication: FIBROMYALGIA
     Route: 048
  13. HUMALOG [Concomitant]
     Indication: DIABETES MELLITUS
     Route: 048
  14. LANTUS [Concomitant]
     Indication: DIABETES MELLITUS
     Route: 050
  15. SYNTHROID [Concomitant]
     Indication: THYROID DISORDER
     Route: 048
  16. NASONEX [Concomitant]
     Indication: MULTIPLE ALLERGIES
     Route: 045
  17. TRAMADOL HCL [Concomitant]
     Indication: PAIN
     Route: 048
  18. ASPIRIN [Concomitant]
     Indication: CARDIAC DISORDER
     Route: 048

REACTIONS (4)
  - APPLICATION SITE PRURITUS [None]
  - INCORRECT DRUG ADMINISTRATION DURATION [None]
  - PNEUMONIA [None]
  - WRONG TECHNIQUE IN DRUG USAGE PROCESS [None]
